FAERS Safety Report 21770949 (Version 2)
Quarter: 2023Q1

REPORT INFORMATION
  Report Type: Report from Study
  Country: GB (occurrence: GB)
  Receive Date: 20221223
  Receipt Date: 20230305
  Transmission Date: 20230418
  Serious: Yes (Hospitalization)
  Sender: FDA-Public Use
  Company Number: GB-JNJFOC-20221230896

PATIENT
  Sex: Male

DRUGS (11)
  1. TREMFYA [Suspect]
     Active Substance: GUSELKUMAB
     Indication: Psoriasis
     Route: 058
     Dates: start: 20200301
  2. TREMFYA [Suspect]
     Active Substance: GUSELKUMAB
  3. TREMFYA [Suspect]
     Active Substance: GUSELKUMAB
  4. BETAMETHASONE\CALCIPOTRIENE [Concomitant]
     Active Substance: BETAMETHASONE\CALCIPOTRIENE
     Dates: start: 20130123
  5. MIRTAZAPINE [Concomitant]
     Active Substance: MIRTAZAPINE
     Dates: start: 20140101
  6. XAMIOL [BETAMETHASONE DIPROPIONATE;CALCIPOTRIOL MONOHYDRATE] [Concomitant]
     Dates: start: 20170221
  7. BISOPROLOL [Concomitant]
     Active Substance: BISOPROLOL
     Dates: start: 20220114
  8. APIXABAN [Concomitant]
     Active Substance: APIXABAN
     Dates: start: 20220117
  9. OMEPRAZOLE [Concomitant]
     Active Substance: OMEPRAZOLE
     Dates: start: 20220117
  10. CO-DYDRAMOL [Concomitant]
     Active Substance: ACETAMINOPHEN\DIHYDROCODEINE
     Dates: start: 20220217
  11. XAMIOL [BETAMETHASONE DIPROPIONATE;CALCIPOTRIOL MONOHYDRATE] [Concomitant]

REACTIONS (5)
  - Atrial fibrillation [Not Recovered/Not Resolved]
  - Pulmonary oedema [Not Recovered/Not Resolved]
  - Acute kidney injury [Recovered/Resolved]
  - Alcohol problem [Not Recovered/Not Resolved]
  - Thrombocytopenia [Recovered/Resolved]

NARRATIVE: CASE EVENT DATE: 20220113
